FAERS Safety Report 19787543 (Version 2)
Quarter: 2021Q3

REPORT INFORMATION
  Report Type: Spontaneous
  Country: CN (occurrence: CN)
  Receive Date: 20210903
  Receipt Date: 20210920
  Transmission Date: 20211014
  Serious: No
  Sender: FDA-Public Use
  Company Number: CN-NOVOPROD-840871

PATIENT
  Age: 65 Year
  Sex: Female
  Weight: 61.6 kg

DRUGS (3)
  1. VICTOZA [Suspect]
     Active Substance: LIRAGLUTIDE
     Indication: TYPE 2 DIABETES MELLITUS
     Dosage: 1.5 MG, QD
     Route: 058
     Dates: start: 20210730, end: 202108
  2. METFORMIN HYDROCHLORIDE. [Suspect]
     Active Substance: METFORMIN HYDROCHLORIDE
     Indication: TYPE 2 DIABETES MELLITUS
     Dosage: 0.5 G, BID
     Route: 048
     Dates: start: 20210730, end: 20210803
  3. VICTOZA [Suspect]
     Active Substance: LIRAGLUTIDE
     Dosage: 0.3 MG
     Route: 058
     Dates: start: 202108

REACTIONS (4)
  - Inappropriate schedule of product administration [Unknown]
  - Nausea [Recovering/Resolving]
  - Abdominal discomfort [Recovered/Resolved]
  - Vomiting [Recovering/Resolving]

NARRATIVE: CASE EVENT DATE: 20210730
